FAERS Safety Report 9290610 (Version 1)
Quarter: 2013Q2

REPORT INFORMATION
  Report Type: Report from Study
  Country: IT (occurrence: IT)
  Receive Date: 20130515
  Receipt Date: 20130515
  Transmission Date: 20140414
  Serious: Yes (Other)
  Sender: FDA-Public Use
  Company Number: IT-CELGENEUS-083-50794-13050685

PATIENT
  Age: 68 Year
  Sex: 0

DRUGS (1)
  1. VIDAZA [Suspect]
     Indication: MYELODYSPLASTIC SYNDROME
     Route: 065

REACTIONS (6)
  - Cardiovascular disorder [Unknown]
  - Blood product transfusion dependent [Unknown]
  - Diabetes mellitus [Unknown]
  - Liver disorder [Unknown]
  - Renal impairment [Unknown]
  - Respiratory disorder [Unknown]
